FAERS Safety Report 18546776 (Version 2)
Quarter: 2021Q1

REPORT INFORMATION
  Report Type: Report from Study
  Country: US (occurrence: US)
  Receive Date: 20201125
  Receipt Date: 20210107
  Transmission Date: 20210419
  Serious: Yes (Death)
  Sender: FDA-Public Use
  Company Number: US-ASTRAZENECA-2020SF55852

PATIENT
  Sex: Male
  Weight: 190 kg

DRUGS (1)
  1. SYMBICORT [Suspect]
     Active Substance: BUDESONIDE\FORMOTEROL FUMARATE DIHYDRATE
     Dosage: 160?4.5 MCG, 2 PUFFS, TWO TIMES A DAY
     Route: 055
     Dates: start: 20190904, end: 20200609

REACTIONS (1)
  - Death [Fatal]
